FAERS Safety Report 9571555 (Version 1)
Quarter: 2013Q3

REPORT INFORMATION
  Report Type: Spontaneous
  Country: PL (occurrence: None)
  Receive Date: 20130927
  Receipt Date: 20130927
  Transmission Date: 20140515
  Serious: No
  Sender: FDA-Public Use
  Company Number: 2013AP008307

PATIENT
  Age: 62 Year
  Sex: Female

DRUGS (3)
  1. DONEPEZIL (DONEPEZIL) [Suspect]
     Indication: DEMENTIA ALZHEIMER^S TYPE
     Dates: start: 2007, end: 200808
  2. PARACETAMOL (PARACETAMOL) [Concomitant]
  3. ASPIRIN (ACETYLSALICYOC ACID) [Concomitant]

REACTIONS (5)
  - Withdrawal syndrome [None]
  - Delirium [None]
  - Abdominal pain upper [None]
  - Infection [None]
  - Decreased appetite [None]
